FAERS Safety Report 7021574-0 (Version None)
Quarter: 2010Q3

REPORT INFORMATION
  Report Type: 
  Country: None (occurrence: None)
  Receive Date: 20100928
  Receipt Date: 20100917
  Transmission Date: 20110219
  Serious: Yes (Other)
  Sender: FDA-Public Use
  Company Number: 701268

PATIENT
  Age: 62 Year

DRUGS (5)
  1. NIPENT [Suspect]
     Indication: CHRONIC LYMPHOCYTIC LEUKAEMIA
     Dosage: 9.0 MG CUMULATIVE DOSE
     Dates: start: 20070827, end: 20070831
  2. RITUXAN [Suspect]
     Indication: CHRONIC LYMPHOCYTIC LEUKAEMIA
     Dosage: 1820 MG CUMULATIVE DOSE
     Dates: start: 20070827, end: 20070831
  3. CYCLOPHOSPHAMIDE [Suspect]
     Indication: CHRONIC LYMPHOCYTIC LEUKAEMIA
     Dosage: 1400.0 MG CUMULATIVE DOSE
     Dates: start: 20070827, end: 20070831
  4. NEUPOGEN [Concomitant]
  5. (ALKYLATING AGENTS) [Concomitant]

REACTIONS (2)
  - MARROW HYPERPLASIA [None]
  - MYELODYSPLASTIC SYNDROME [None]
